FAERS Safety Report 7212377-2 (Version None)
Quarter: 2010Q4

REPORT INFORMATION
  Report Type: 
  Country: None (occurrence: None)
  Receive Date: 20101227
  Receipt Date: 20101211
  Transmission Date: 20110411
  Serious: Yes (Hospitalization)
  Sender: FDA-Public Use
  Company Number: 023950

PATIENT
  Sex: Male

DRUGS (10)
  1. ROTIGOTINE (ROTIGOTINE) [Suspect]
     Indication: PARKINSON'S DISEASE
     Dosage: 2 MG 1X/24 HOURS, TRANSDERMAL, 16 MG  1X/24 HOURS, TRANSDERMAL
     Route: 062
     Dates: end: 20101210
  2. ROTIGOTINE (ROTIGOTINE) [Suspect]
     Indication: PARKINSON'S DISEASE
     Dosage: 2 MG 1X/24 HOURS, TRANSDERMAL, 16 MG  1X/24 HOURS, TRANSDERMAL
     Route: 062
     Dates: start: 20100309
  3. BENSERAZIDE HYDROCHLORIDE W/LEVODOPA [Concomitant]
  4. ALLOPURINOL [Concomitant]
  5. VALSARTAN [Concomitant]
  6. ASPIRIN [Concomitant]
  7. ATORVASTATIN CALCIUM [Concomitant]
  8. SELEGILINE HYDROCHLORIDE [Concomitant]
  9. ENTACAPONE [Concomitant]
  10. BISOPROLOL FUMARATE [Concomitant]

REACTIONS (5)
  - DELIRIUM [None]
  - DELUSION [None]
  - HALLUCINATIONS, MIXED [None]
  - PARANOIA [None]
  - RESTLESSNESS [None]
